FAERS Safety Report 4752247-2 (Version None)
Quarter: 2005Q3

REPORT INFORMATION
  Report Type: 
  Country: None (occurrence: None)
  Receive Date: 20050822
  Receipt Date: 20050822
  Transmission Date: 20060218
  Serious: Yes (Hospitalization, Other)
  Sender: FDA-Public Use
  Company Number: None

PATIENT
  Sex: Male
  Weight: 86.64 kg

DRUGS (2)
  1. CISPLATIN [Suspect]
     Indication: NEOPLASM MALIGNANT
     Dosage: SEE IMAGE
     Dates: start: 20050726
  2. RADIATION [Suspect]
     Dosage: SEE IMAGE

REACTIONS (3)
  - ACINETOBACTER INFECTION [None]
  - CATHETER RELATED INFECTION [None]
  - ESCHERICHIA INFECTION [None]
